FAERS Safety Report 7002324-0 (Version None)
Quarter: 2010Q3

REPORT INFORMATION
  Report Type: 
  Country: None (occurrence: None)
  Receive Date: 20100920
  Receipt Date: 20100602
  Transmission Date: 20110219
  Serious: Yes (Other)
  Sender: FDA-Public Use
  Company Number: US-ASTRAZENECA-2007UW03704

PATIENT
  Age: 29 Year
  Sex: Female
  Weight: 154.2 kg

DRUGS (24)
  1. SEROQUEL [Suspect]
     Indication: DEPRESSION
     Route: 048
     Dates: start: 20021201, end: 20040510
  2. SEROQUEL [Suspect]
     Indication: SCHIZOPHRENIA
     Route: 048
     Dates: start: 20021201, end: 20040510
  3. SEROQUEL [Suspect]
     Dosage: 100-200 MG
     Route: 048
     Dates: start: 20031206
  4. SEROQUEL [Suspect]
     Dosage: 100-200 MG
     Route: 048
     Dates: start: 20031206
  5. RISPERDAL [Concomitant]
     Dosage: 3-4MG
     Dates: start: 20020705, end: 20040612
  6. ZYPREXA [Concomitant]
     Dates: start: 19970811, end: 20040501
  7. ZENECAL [Concomitant]
     Dates: start: 20040101
  8. DEXATRIM [Concomitant]
     Dates: start: 20080101
  9. ABILIFY [Concomitant]
     Dates: start: 20040612
  10. ABILIFY [Concomitant]
     Dates: start: 20070522
  11. GEODON [Concomitant]
     Dates: start: 20020510, end: 20020602
  12. TRAZODONE HCL [Concomitant]
     Dosage: 50-100MG
     Dates: start: 20000605
  13. LAMICTAL [Concomitant]
     Dates: start: 20060101
  14. PROZAC [Concomitant]
     Dosage: 10-40 MG
     Dates: start: 19991123
  15. PLENDIL [Concomitant]
     Route: 048
     Dates: start: 20030128
  16. GLUCOPHAGE [Concomitant]
     Dates: start: 20020213
  17. ACTOS [Concomitant]
     Dates: start: 20070522
  18. LASIX [Concomitant]
     Dates: start: 20070522
  19. HYDROXYZINE [Concomitant]
     Dates: start: 20070522
  20. CLONIDINE [Concomitant]
     Dates: start: 20070522
  21. GLIPIZIDE [Concomitant]
     Dates: start: 20070522
  22. TOPROL-XL [Concomitant]
     Dosage: 50-100 MG
     Dates: start: 20070522
  23. KLONOPIN [Concomitant]
     Indication: NERVOUSNESS
     Dates: start: 19991123
  24. PROLIXIN [Concomitant]
     Dates: start: 19960213

REACTIONS (7)
  - ABDOMINAL PAIN UPPER [None]
  - BACK PAIN [None]
  - PANCREATITIS [None]
  - PANCREATITIS ACUTE [None]
  - RASH [None]
  - TYPE 2 DIABETES MELLITUS [None]
  - WEIGHT INCREASED [None]
